FAERS Safety Report 6149086-7 (Version None)
Quarter: 2009Q2

REPORT INFORMATION
  Report Type: 
  Country: None (occurrence: None)
  Receive Date: 20090407
  Receipt Date: 20090327
  Transmission Date: 20091009
  Serious: Yes (Hospitalization)
  Sender: FDA-Public Use
  Company Number: WAES 0804USA06512

PATIENT
  Age: 77 Year
  Sex: Male

DRUGS (21)
  1. CAP VORINOSTAT [Suspect]
     Indication: NON-SMALL CELL LUNG CANCER
     Dosage: 400 MG/DAILY, PO
     Route: 048
     Dates: start: 20080324, end: 20080406
  2. CAP VORINOSTAT [Suspect]
     Indication: NON-SMALL CELL LUNG CANCER
     Dosage: 400 MG/DAILY, PO
     Route: 048
     Dates: start: 20080418, end: 20080428
  3. CAP VORINOSTAT [Suspect]
     Indication: NON-SMALL CELL LUNG CANCER
     Dosage: 400 MG/DAILY, PO
     Route: 048
     Dates: start: 20080518, end: 20080526
  4. CARBOPLATIN [Suspect]
     Indication: NON-SMALL CELL LUNG CANCER
     Dosage: 368 MG/1X, IV; 351 MG/1X, IV; 350 MG/1X; IV
     Route: 042
     Dates: start: 20080328, end: 20080328
  5. CARBOPLATIN [Suspect]
     Indication: NON-SMALL CELL LUNG CANCER
     Dosage: 368 MG/1X, IV; 351 MG/1X, IV; 350 MG/1X; IV
     Route: 042
     Dates: start: 20080418, end: 20080418
  6. CARBOPLATIN [Suspect]
     Indication: NON-SMALL CELL LUNG CANCER
     Dosage: 368 MG/1X, IV; 351 MG/1X, IV; 350 MG/1X; IV
     Route: 042
     Dates: start: 20080515, end: 20080515
  7. PACLITAXEL [Suspect]
     Indication: NON-SMALL CELL LUNG CANCER
     Dosage: 347 MG/1X, IV; 347 MG/1X, IV ; 340 MG/1X, IV; 336 MG/1X, IV
     Route: 042
     Dates: start: 20080328, end: 20080328
  8. PACLITAXEL [Suspect]
     Indication: NON-SMALL CELL LUNG CANCER
     Dosage: 347 MG/1X, IV; 347 MG/1X, IV ; 340 MG/1X, IV; 336 MG/1X, IV
     Route: 042
     Dates: start: 20080418, end: 20080418
  9. PACLITAXEL [Suspect]
     Indication: NON-SMALL CELL LUNG CANCER
     Dosage: 347 MG/1X, IV; 347 MG/1X, IV ; 340 MG/1X, IV; 336 MG/1X, IV
     Route: 042
     Dates: start: 20080515, end: 20080515
  10. APO-RAMIPRIL [Concomitant]
  11. GARAMYCIN [Concomitant]
  12. IMODIUM [Concomitant]
  13. IMOVANE [Concomitant]
  14. LIPITOR [Concomitant]
  15. PLAVIX [Concomitant]
  16. PMS METOPROLOL [Concomitant]
  17. RIVOTRIL [Concomitant]
  18. SENOKOT [Concomitant]
  19. ASPIRIN [Concomitant]
  20. CODEINE [Concomitant]
  21. HYDROCORTISONE [Concomitant]

REACTIONS (26)
  - ABDOMINAL PAIN UPPER [None]
  - ANAEMIA [None]
  - ANORECTAL DISCOMFORT [None]
  - ANOREXIA [None]
  - ARTHRALGIA [None]
  - DEHYDRATION [None]
  - DIARRHOEA [None]
  - DRUG TOXICITY [None]
  - DRY SKIN [None]
  - DYSPNOEA [None]
  - EYE DISCHARGE [None]
  - EYE PAIN [None]
  - FALL [None]
  - FATIGUE [None]
  - HYPOCALCAEMIA [None]
  - HYPOKALAEMIA [None]
  - HYPOPHAGIA [None]
  - HYPOTENSION [None]
  - INSOMNIA [None]
  - NAUSEA [None]
  - NEUTROPENIA [None]
  - OLIGURIA [None]
  - PERIPHERAL MOTOR NEUROPATHY [None]
  - THROMBOCYTOPENIA [None]
  - URINARY TRACT INFECTION [None]
  - VOMITING [None]
